FAERS Safety Report 10344311 (Version 2)
Quarter: 2014Q3

REPORT INFORMATION
  Report Type: Report from Study
  Country: US (occurrence: US)
  Receive Date: 20140728
  Receipt Date: 20140728
  Transmission Date: 20150326
  Serious: Yes (Hospitalization)
  Sender: FDA-Public Use
  Company Number: US-ROCHE-1434652

PATIENT
  Age: 55 Year
  Sex: Male

DRUGS (9)
  1. RITUXIMAB [Suspect]
     Active Substance: RITUXIMAB
     Indication: ANTI-NEUTROPHIL CYTOPLASMIC ANTIBODY POSITIVE VASCULITIS
     Dosage: LAST DOSE PRIOR TO SAE 12/MAY/2014
     Route: 042
     Dates: start: 20140414
  2. SULFAMETHOXAZOLE TMP [Concomitant]
     Dosage: 800-160MG
     Route: 048
     Dates: start: 20130717
  3. BUDESONIDE/FORMOTEROL FUMARATE [Concomitant]
     Active Substance: BUDESONIDE\FORMOTEROL
     Dosage: 6 INHALES
     Route: 065
     Dates: start: 20130529
  4. INSULIN GLARGINE [Concomitant]
     Active Substance: INSULIN GLARGINE
     Dosage: 100UNIT/ML
     Route: 058
     Dates: start: 20121213
  5. MONTELUKAST SODIUM. [Concomitant]
     Active Substance: MONTELUKAST SODIUM
     Route: 048
     Dates: start: 20130305
  6. ALBUTEROL. [Concomitant]
     Active Substance: ALBUTEROL
     Dosage: 6 INHALE
     Route: 050
     Dates: start: 20130225
  7. OXYCODONE/ASPIRIN [Concomitant]
  8. FUROSEMIDE. [Concomitant]
     Active Substance: FUROSEMIDE
     Route: 048
     Dates: start: 20140416
  9. INSULIN ASPART [Concomitant]
     Active Substance: INSULIN ASPART
     Dosage: 100UNIT/ML
     Route: 058
     Dates: start: 20120918

REACTIONS (1)
  - Deep vein thrombosis [Recovered/Resolved with Sequelae]

NARRATIVE: CASE EVENT DATE: 20140711
